FAERS Safety Report 19596657 (Version 4)
Quarter: 2022Q3

REPORT INFORMATION
  Report Type: Report from Study
  Country: CA (occurrence: CA)
  Receive Date: 20210723
  Receipt Date: 20220801
  Transmission Date: 20221027
  Serious: Yes (Other)
  Sender: FDA-Public Use
  Company Number: CA-JNJFOC-20210737520

PATIENT
  Sex: Male
  Weight: 34 kg

DRUGS (2)
  1. REMICADE [Suspect]
     Active Substance: INFLIXIMAB
     Indication: Crohn^s disease
     Dosage: PRESCRIPTION RENEWAL.?V:3 - THERAPY START DATE REPORTED AS 23-APR-2019.
     Route: 042
     Dates: start: 2015
  2. REMICADE [Suspect]
     Active Substance: INFLIXIMAB
     Dosage: INTERVAL ADJUSTMENT
     Route: 042

REACTIONS (6)
  - Haemorrhage [Unknown]
  - Upper limb fracture [Recovering/Resolving]
  - Eye infection [Not Recovered/Not Resolved]
  - Superinfection [Recovering/Resolving]
  - Psoriasis [Recovering/Resolving]
  - Off label use [Unknown]

NARRATIVE: CASE EVENT DATE: 20150101
